FAERS Safety Report 20559178 (Version 2)
Quarter: 2022Q2

REPORT INFORMATION
  Report Type: Spontaneous
  Country: PL (occurrence: PL)
  Receive Date: 20220307
  Receipt Date: 20220404
  Transmission Date: 20220720
  Serious: Yes (Other)
  Sender: FDA-Public Use
  Company Number: PL-MYLANLABS-2021M1090902

PATIENT
  Age: 48 Year
  Sex: Male

DRUGS (4)
  1. GLICLAZIDE [Suspect]
     Active Substance: GLICLAZIDE
     Indication: Diabetes mellitus
     Dosage: UNK, QD (1 + 0 + 0 TABLETS OF GLICLAZIDE  )
     Route: 048
  2. GLICLAZIDE [Suspect]
     Active Substance: GLICLAZIDE
     Dosage: UNK (INCREASED BY AN ADDITIONAL DOSE)
     Route: 048
  3. METFORMIN [Suspect]
     Active Substance: METFORMIN HYDROCHLORIDE
     Indication: Diabetes mellitus
     Dosage: 850 MILLIGRAM, BID (0.850 0 + 1 +1 TABLETS OF METFORMIN)
     Route: 048
  4. METFORMIN [Suspect]
     Active Substance: METFORMIN HYDROCHLORIDE
     Dosage: UNK (INCREASED BY AN ADDITIONAL DOSE)
     Route: 048

REACTIONS (2)
  - Diabetes mellitus inadequate control [Recovering/Resolving]
  - Therapeutic product effect incomplete [Unknown]

NARRATIVE: CASE EVENT DATE: 20220101
